FAERS Safety Report 7702891-5 (Version None)
Quarter: 2011Q3

REPORT INFORMATION
  Report Type: 
  Country: None (occurrence: None)
  Receive Date: 20110823
  Receipt Date: 20110809
  Transmission Date: 20111222
  Serious: Yes (Hospitalization, Other)
  Sender: FDA-Public Use
  Company Number: US-BAYER-201034259NA

PATIENT
  Age: 55 Year
  Sex: Female
  Weight: 113.38 kg

DRUGS (14)
  1. PREMPRO [Concomitant]
  2. PREDNISONE [Concomitant]
  3. ASPIRIN [Concomitant]
  4. CLOTRIMAZOLE [Concomitant]
  5. CLARITIN [Concomitant]
  6. YASMIN [Suspect]
     Indication: MENOPAUSE
     Dosage: UNK UNK, QD
     Route: 048
     Dates: start: 20071201, end: 20080901
  7. DROSPIRENONE AND ETHINYL ESTRADIOL [Suspect]
     Indication: MENOPAUSE
     Dosage: UNK
     Dates: start: 20071201, end: 20080901
  8. AMLODIPINE [Concomitant]
     Dosage: UNK
     Dates: start: 20060101
  9. ACIPHEX [Concomitant]
  10. BENZONATATE [Concomitant]
  11. MAXZIDE [Concomitant]
     Dosage: UNK
     Dates: start: 20060101
  12. BENAZEPRIL HYDROCHLORIDE [Concomitant]
     Dosage: UNK
     Dates: start: 20060101
  13. BIAXIN [Concomitant]
  14. PRILOSEC [Concomitant]

REACTIONS (3)
  - PAIN [None]
  - DEEP VEIN THROMBOSIS [None]
  - PULMONARY EMBOLISM [None]
